FAERS Safety Report 6084982-0 (Version None)
Quarter: 2009Q1

REPORT INFORMATION
  Report Type: 
  Country: None (occurrence: None)
  Receive Date: 20090220
  Receipt Date: 20090216
  Transmission Date: 20090719
  Serious: No
  Sender: FDA-Public Use
  Company Number: JP-JNJFOC-20090203134

PATIENT
  Age: 89 Year
  Sex: Female

DRUGS (2)
  1. RISPERDAL ORO DISPERSIBLE TABLET [Suspect]
     Indication: DELIRIUM
     Route: 048
  2. TOLEDOMIN [Suspect]
     Indication: DRUG USE FOR UNKNOWN INDICATION
     Route: 065

REACTIONS (1)
  - WHITE BLOOD CELL COUNT DECREASED [None]
